FAERS Safety Report 8831929 (Version 2)
Quarter: 2014Q1

REPORT INFORMATION
  Report Type: Spontaneous
  Country: US (occurrence: US)
  Receive Date: 20121009
  Receipt Date: 20140321
  Transmission Date: 20141002
  Serious: No
  Sender: FDA-Public Use
  Company Number: US-ASTRAZENECA-2012SE73297

PATIENT
  Age: 44 Year
  Sex: Female
  Weight: 99.8 kg

DRUGS (9)
  1. NEXIUM [Suspect]
     Indication: GASTROOESOPHAGEAL REFLUX DISEASE
     Route: 048
  2. NEXIUM [Suspect]
     Indication: GASTROOESOPHAGEAL REFLUX DISEASE
     Route: 048
     Dates: start: 2001, end: 20140309
  3. METFORMIN [Concomitant]
     Indication: DIABETES MELLITUS
     Route: 048
     Dates: start: 2001
  4. LANTIS SOLOSTART [Concomitant]
     Indication: DIABETES MELLITUS
     Route: 058
     Dates: start: 2010
  5. AMLODIPINE [Concomitant]
     Indication: BLOOD PRESSURE ABNORMAL
     Route: 048
     Dates: start: 2010
  6. LOSARTAN [Concomitant]
     Indication: BLOOD PRESSURE ABNORMAL
     Route: 048
     Dates: start: 2010
  7. ZOCOR [Concomitant]
     Indication: BLOOD CHOLESTEROL ABNORMAL
     Route: 048
     Dates: start: 2010
  8. NEURONTIN [Concomitant]
     Indication: NERVE INJURY
     Dosage: 300 MG
     Route: 048
     Dates: start: 2013
  9. FLEXERIL [Concomitant]
     Indication: MUSCLE SPASMS
     Route: 048
     Dates: start: 201401

REACTIONS (17)
  - Ear infection [Not Recovered/Not Resolved]
  - Deafness [Unknown]
  - Abdominal distension [Unknown]
  - Injection site vesicles [Unknown]
  - Otorrhoea [Unknown]
  - Ear discomfort [Unknown]
  - Sinusitis [Unknown]
  - Gastrooesophageal reflux disease [Unknown]
  - Aphagia [Unknown]
  - Dysphagia [Unknown]
  - Sleep disorder due to a general medical condition [Unknown]
  - Dyspepsia [Unknown]
  - Nausea [Unknown]
  - Circumstance or information capable of leading to medication error [Unknown]
  - Off label use [Unknown]
  - Drug dose omission [Unknown]
  - Drug effect decreased [Unknown]
